FAERS Safety Report 14688908 (Version 2)
Quarter: 2018Q2

REPORT INFORMATION
  Report Type: Spontaneous
  Country: US (occurrence: US)
  Receive Date: 20180328
  Receipt Date: 20180413
  Transmission Date: 20180711
  Serious: Yes (Hospitalization, Disabling, Other)
  Sender: FDA-Public Use
  Company Number: US-JNJFOC-20180335141

PATIENT
  Age: 55 Year
  Sex: Male

DRUGS (1)
  1. INVOKANA [Suspect]
     Active Substance: CANAGLIFLOZIN
     Indication: DIABETES MELLITUS
     Route: 048
     Dates: start: 20170125, end: 20171005

REACTIONS (3)
  - Post procedural complication [Unknown]
  - Leg amputation [Unknown]
  - Cellulitis [Unknown]

NARRATIVE: CASE EVENT DATE: 20171018
